FAERS Safety Report 17091004 (Version 1)
Quarter: 2019Q4

REPORT INFORMATION
  Report Type: Spontaneous
  Country: US (occurrence: US)
  Receive Date: 20191031
  Receipt Date: 20191031
  Transmission Date: 20200122
  Serious: No
  Sender: FDA-Public Use
  Company Number: None

PATIENT
  Age: 73 Year
  Sex: Female

DRUGS (1)
  1. LAMIVUDINE 150MG/ZIDOVUDINE 300MG TABLET [Suspect]
     Active Substance: LAMIVUDINE\ZIDOVUDINE
     Route: 048
     Dates: start: 201908

REACTIONS (3)
  - Gait inability [None]
  - Arthralgia [None]
  - Pain [None]

NARRATIVE: CASE EVENT DATE: 20191031
